FAERS Safety Report 20723980 (Version 1)
Quarter: 2022Q2

REPORT INFORMATION
  Report Type: Spontaneous
  Country: US (occurrence: US)
  Receive Date: 20220419
  Receipt Date: 20220419
  Transmission Date: 20220721
  Serious: Yes (Other)
  Sender: FDA-Public Use
  Company Number: US-HLS-202200302

PATIENT
  Sex: Male

DRUGS (1)
  1. CLOZAPINE [Suspect]
     Active Substance: CLOZAPINE
     Indication: Schizoaffective disorder depressive type
     Dosage: TREATMENT STARTED 3 YEARS AGO.
     Route: 065

REACTIONS (5)
  - Off label use [Unknown]
  - Toxicity to various agents [Unknown]
  - Psychiatric symptom [Unknown]
  - Psychotic symptom [Unknown]
  - Suicidal ideation [Unknown]
